FAERS Safety Report 26143798 (Version 1)
Quarter: 2025Q4

REPORT INFORMATION
  Report Type: Other
  Country: GB (occurrence: GB)
  Receive Date: 20251211
  Receipt Date: 20251211
  Transmission Date: 20260118
  Serious: Yes (Disabling, Other)
  Sender: MACLEODS
  Company Number: None

PATIENT

DRUGS (1)
  1. ESCITALOPRAM [Suspect]
     Active Substance: ESCITALOPRAM OXALATE
     Indication: Product used for unknown indication
     Dosage: 5MG
     Dates: start: 20240629, end: 20240702

REACTIONS (7)
  - Sexual dysfunction [Not Recovered/Not Resolved]
  - Erectile dysfunction [Unknown]
  - Genital hypoaesthesia [Unknown]
  - Loss of libido [Unknown]
  - Decreased interest [Unknown]
  - Anhedonia [Unknown]
  - Libido decreased [Unknown]

NARRATIVE: CASE EVENT DATE: 20240702
